FAERS Safety Report 5390958-9 (Version None)
Quarter: 2007Q3

REPORT INFORMATION
  Report Type: 
  Country: None (occurrence: None)
  Receive Date: 20070719
  Receipt Date: 20070709
  Transmission Date: 20080115
  Serious: Yes (Other)
  Sender: FDA-Public Use
  Company Number: US-JNJFOC-20070701913

PATIENT
  Sex: Male
  Weight: 83.92 kg

DRUGS (6)
  1. REMICADE [Suspect]
     Indication: ANKYLOSING SPONDYLITIS
     Route: 042
  2. LOTREL [Concomitant]
     Indication: BLOOD PRESSURE
     Dosage: 20/5
  3. CRESTOR [Concomitant]
     Indication: BLOOD CHOLESTEROL
  4. METHOTREXATE [Concomitant]
     Indication: ANKYLOSING SPONDYLITIS
  5. ASPIRIN [Concomitant]
     Indication: HIP ARTHROPLASTY
  6. VITAMIN CAP [Concomitant]

REACTIONS (1)
  - PROSTATE CANCER [None]
